FAERS Safety Report 25923226 (Version 1)
Quarter: 2025Q4

REPORT INFORMATION
  Report Type: Spontaneous
  Country: CN (occurrence: CN)
  Receive Date: 20251015
  Receipt Date: 20251015
  Transmission Date: 20260118
  Serious: Yes (Other)
  Sender: GE HEALTHCARE
  Company Number: None

PATIENT
  Age: 71 Year
  Sex: Female
  Weight: 56 kg

DRUGS (1)
  1. VISIPAQUE [Suspect]
     Active Substance: IODIXANOL
     Indication: Percutaneous coronary intervention
     Dosage: 32 GM, TOTAL
     Route: 041
     Dates: start: 20250924, end: 20250924

REACTIONS (5)
  - Restlessness [Recovering/Resolving]
  - Initial insomnia [Recovering/Resolving]
  - Pruritus [Recovering/Resolving]
  - Contrast media allergy [Recovering/Resolving]
  - Nausea [Recovering/Resolving]

NARRATIVE: CASE EVENT DATE: 20250924
